FAERS Safety Report 15279924 (Version 1)
Quarter: 2018Q3

REPORT INFORMATION
  Report Type: Spontaneous
  Country: US (occurrence: US)
  Receive Date: 20180730
  Receipt Date: 20180730
  Transmission Date: 20181010
  Serious: No
  Sender: FDA-Public Use
  Company Number: None

PATIENT
  Age: 61 Year
  Sex: Male

DRUGS (1)
  1. SUTENT [Suspect]
     Active Substance: SUNITINIB MALATE
     Route: 048

REACTIONS (5)
  - Fatigue [None]
  - Skin discolouration [None]
  - Diarrhoea [None]
  - Dysgeusia [None]
  - Oedema [None]

NARRATIVE: CASE EVENT DATE: 20180730
